FAERS Safety Report 9189844 (Version 1)
Quarter: 2013Q1

REPORT INFORMATION
  Report Type: Spontaneous
  Country: SE (occurrence: None)
  Receive Date: 20130322
  Receipt Date: 20130322
  Transmission Date: 20140127
  Serious: Yes (Hospitalization, Disabling)
  Sender: FDA-Public Use
  Company Number: SYM-2013-01774

PATIENT
  Age: 45 Year
  Sex: Male

DRUGS (12)
  1. FLAGYL [Suspect]
     Indication: DUODENAL ULCER
     Route: 048
     Dates: start: 20130207, end: 20130214
  2. OMEPRAZOLE [Suspect]
     Route: 048
     Dates: start: 20130207, end: 20130214
  3. NEXIUM [Suspect]
     Indication: DUODENAL ULCER
     Dates: start: 20130122, end: 20130122
  4. MABTHERA [Suspect]
     Indication: HAEMOLYTIC URAEMIC SYNDROME
     Route: 041
     Dates: start: 20130129, end: 20130129
  5. KLACID [Suspect]
     Indication: DUODENAL ULCER
     Route: 048
     Dates: start: 20130207, end: 20130214
  6. DAFALGAN [Suspect]
     Indication: PRODUCT USED FOR UNKNOWN INDICATION
     Route: 048
     Dates: start: 20130110, end: 20130112
  7. TOPLEXIL (OXOMEMAZINE) [Concomitant]
  8. PREDNISON (PREDNISONE) [Concomitant]
  9. ACIDUM FOLICUM (FOLIC ACID) [Concomitant]
  10. AMLODIPINE (AMLODIPINE) [Concomitant]
  11. PANTOPRAZOLE (PANTOPRAZOLE) [Concomitant]
  12. MOTILIUM (DOMPERIDONE) [Concomitant]

REACTIONS (7)
  - Conjunctivitis [None]
  - Periorbital oedema [None]
  - Influenza [None]
  - Eyelid oedema [None]
  - Blister [None]
  - Toxic epidermal necrolysis [None]
  - Aphthous stomatitis [None]
